FAERS Safety Report 8990178 (Version 1)
Quarter: 2012Q4

REPORT INFORMATION
  Report Type: 
  Country: US (occurrence: US)
  Receive Date: 20121228
  Receipt Date: 20121228
  Transmission Date: 20130627
  Serious: No
  Sender: FDA-Public Use
  Company Number: US-PFIZER INC-2012329067

PATIENT
  Age: 27 Year
  Sex: Female
  Weight: 83.9 kg

DRUGS (2)
  1. AZITHROMYCIN [Suspect]
     Indication: PHARYNGITIS
     Dosage: UNK
     Dates: start: 20121222, end: 20121225
  2. TYLENOL [Concomitant]
     Indication: FEVER
     Dosage: UNK, as needed

REACTIONS (2)
  - Rash generalised [Not Recovered/Not Resolved]
  - Skin warm [Not Recovered/Not Resolved]
